FAERS Safety Report 8490008-1 (Version None)
Quarter: 2012Q3

REPORT INFORMATION
  Report Type: 
  Country: None (occurrence: None)
  Receive Date: 20120705
  Receipt Date: 20120629
  Transmission Date: 20120928
  Serious: Yes (Other)
  Sender: FDA-Public Use
  Company Number: PHHY2012NO056992

PATIENT
  Age: 68 Year
  Sex: Female

DRUGS (5)
  1. FLUOROURACIL [Suspect]
     Route: 042
     Dates: start: 20120615
  2. OXALIPLATIN [Suspect]
     Route: 042
     Dates: start: 20120615
  3. LEUCOVORIN CALCIUM [Concomitant]
  4. FLUOROURACIL [Suspect]
     Route: 042
     Dates: start: 20120614
  5. OXALIPLATIN [Suspect]
     Route: 042
     Dates: start: 20120614

REACTIONS (4)
  - MONOPLEGIA [None]
  - BLOOD PRESSURE INCREASED [None]
  - DYSARTHRIA [None]
  - DYSPNOEA [None]
